FAERS Safety Report 6093155-7 (Version None)
Quarter: 2009Q1

REPORT INFORMATION
  Report Type: 
  Country: None (occurrence: None)
  Receive Date: 20090226
  Receipt Date: 20090211
  Transmission Date: 20090719
  Serious: Yes (Other)
  Sender: FDA-Public Use
  Company Number: US-PFIZER INC-2008155169

PATIENT
  Sex: Female
  Weight: 81.633 kg

DRUGS (3)
  1. CHANTIX [Suspect]
     Indication: SMOKING CESSATION THERAPY
     Dosage: 1 MG, 2X/DAY
     Route: 048
     Dates: start: 20081101, end: 20081202
  2. DEPAKOTE [Suspect]
     Indication: BIPOLAR DISORDER
     Dosage: UNK
     Dates: start: 20081202
  3. PAXIL [Concomitant]
     Indication: BIPOLAR DISORDER
     Dosage: UNK

REACTIONS (2)
  - BIPOLAR DISORDER [None]
  - MANIA [None]
